FAERS Safety Report 4380902-5 (Version None)
Quarter: 2004Q2

REPORT INFORMATION
  Report Type: 
  Country: None (occurrence: None)
  Receive Date: 20040616
  Receipt Date: 20040527
  Transmission Date: 20050107
  Serious: No
  Sender: FDA-Public Use
  Company Number: DE_040613700

PATIENT
  Age: 8 Year
  Sex: Male

DRUGS (3)
  1. ZYPREXA [Suspect]
     Indication: DYSPHEMIA
     Dosage: A FEW WEEKS
  2. ZYPREXA [Suspect]
     Indication: TOURETTE'S DISORDER
     Dosage: A FEW WEEKS
  3. RISPERDAL [Concomitant]

REACTIONS (2)
  - DRUG EFFECT DECREASED [None]
  - ECCHYMOSIS [None]
